FAERS Safety Report 19026767 (Version 2)
Quarter: 2021Q1

REPORT INFORMATION
  Report Type: Spontaneous
  Country: FR (occurrence: FR)
  Receive Date: 20210318
  Receipt Date: 20210322
  Transmission Date: 20210420
  Serious: Yes (Hospitalization, Other)
  Sender: FDA-Public Use
  Company Number: FR-SA-2021SA092909

PATIENT
  Age: 39 Year
  Sex: Female

DRUGS (2)
  1. CLOMID [Suspect]
     Active Substance: CLOMIPHENE CITRATE
     Indication: ASSISTED FERTILISATION
     Dosage: 50 MG
     Route: 048
     Dates: start: 20090801, end: 20100525
  2. DUPHASTON [Suspect]
     Active Substance: DYDROGESTERONE
     Indication: ASSISTED FERTILISATION
     Dosage: 10 MG, QD
     Route: 048
     Dates: start: 20090801, end: 20100525

REACTIONS (1)
  - Meningioma [Recovering/Resolving]

NARRATIVE: CASE EVENT DATE: 202008
